FAERS Safety Report 4601211-2 (Version None)
Quarter: 2005Q1

REPORT INFORMATION
  Report Type: 
  Country: None (occurrence: None)
  Receive Date: 20050204
  Receipt Date: 20041004
  Transmission Date: 20050727
  Serious: Yes (Other)
  Sender: FDA-Public Use
  Company Number: US-2004-027832

PATIENT
  Sex: Female

DRUGS (1)
  1. MIRENA [Suspect]
     Indication: CONTRACEPTION
     Dosage: 20 MICROGRAM, CONT, INTRA-UTERINE
     Route: 015

REACTIONS (2)
  - IUCD COMPLICATION [None]
  - UTERINE PERFORATION [None]
